FAERS Safety Report 7362100-6 (Version None)
Quarter: 2011Q1

REPORT INFORMATION
  Report Type: 
  Country: None (occurrence: None)
  Receive Date: 20110315
  Receipt Date: 20110315
  Transmission Date: 20110831
  Serious: Yes (Life-Threatening)
  Sender: FDA-Public Use
  Company Number: None

PATIENT
  Age: 31 Year
  Sex: Female
  Weight: 90.7194 kg

DRUGS (1)
  1. PLAN B ONE-STEP [Suspect]
     Indication: PREGNANCY ON ORAL CONTRACEPTIVE
     Dosage: 1.5 MG ONCE PO
     Route: 048
     Dates: start: 20110116, end: 20110116

REACTIONS (2)
  - ECTOPIC PREGNANCY [None]
  - PREGNANCY ON ORAL CONTRACEPTIVE [None]
